FAERS Safety Report 5248640-4 (Version None)
Quarter: 2007Q1

REPORT INFORMATION
  Report Type: 
  Country: None (occurrence: None)
  Receive Date: 20070222
  Receipt Date: 20070212
  Transmission Date: 20070707
  Serious: Yes (Other)
  Sender: FDA-Public Use
  Company Number: 236572

PATIENT
  Age: 61 Year
  Sex: Female

DRUGS (8)
  1. XOLAIR [Suspect]
     Indication: ASTHMA
     Dosage: Q4W, SUBCUTANEOUS
     Route: 058
     Dates: start: 20070114
  2. ISOSORBIDE MONONITRATE [Concomitant]
  3. ALBUTEROL (ALBUTEROL/ALBUTEROL SULFATE) [Concomitant]
  4. PAROXETINE (PAROXETINE HYDROCHLORIDE) [Concomitant]
  5. TRIAMTERENE (TRIAMTERENE) [Concomitant]
  6. UNIPHYL [Concomitant]
  7. ZYRTEC [Concomitant]
  8. VERAPAMIL [Concomitant]

REACTIONS (5)
  - ASTHENIA [None]
  - CONFUSIONAL STATE [None]
  - MYOCARDIAL INFARCTION [None]
  - THROMBOSIS [None]
  - UPPER RESPIRATORY TRACT INFECTION [None]
